FAERS Safety Report 20904337 (Version 1)
Quarter: 2022Q2

REPORT INFORMATION
  Report Type: Spontaneous
  Country: US (occurrence: US)
  Receive Date: 20220602
  Receipt Date: 20220602
  Transmission Date: 20220720
  Serious: No
  Sender: FDA-Public Use
  Company Number: US-LUPIN PHARMACEUTICALS INC.-2022-07843

PATIENT
  Age: 32 Year
  Sex: Female

DRUGS (6)
  1. LEVOTHYROXINE [Suspect]
     Active Substance: LEVOTHYROXINE
     Indication: Thyroid therapy
     Dosage: 125 MICROGRAM, QD
     Route: 065
  2. CALCIUM [Suspect]
     Active Substance: CALCIUM
     Indication: Hypocalcaemia
     Dosage: 2 GRAM (CALCIUM-GLUCONATE)
     Route: 042
  3. CALCIUM [Suspect]
     Active Substance: CALCIUM
     Dosage: 1 GRAM, QID (CALCIUM CARBONATE)
     Route: 048
  4. CALCIUM [Suspect]
     Active Substance: CALCIUM
     Dosage: 1 GRAM, TID (CALCIUM CARBONATE)
     Route: 048
  5. CALCITRIOL [Suspect]
     Active Substance: CALCITRIOL
     Indication: Hypocalcaemia
     Dosage: 0.5 MICROGRAM, BID
     Route: 048
  6. CALCITRIOL [Suspect]
     Active Substance: CALCITRIOL
     Dosage: 0.5 MICROGRAM, QD
     Route: 048

REACTIONS (2)
  - Hypercalcaemia [Recovered/Resolved]
  - Maternal exposure during breast feeding [Unknown]
